FAERS Safety Report 8499110-1 (Version None)
Quarter: 2012Q2

REPORT INFORMATION
  Report Type: 
  Country: None (occurrence: None)
  Receive Date: 20120405
  Receipt Date: 20100301
  Transmission Date: 20120825
  Serious: Yes (Other)
  Sender: FDA-Public Use
  Company Number: PHHY2010US07106

PATIENT
  Age: 77 Year
  Sex: Male

DRUGS (9)
  1. ENABLEX [Concomitant]
  2. HYDROCHLOROTHIAZIDE [Concomitant]
  3. FLOMAX [Concomitant]
  4. ANDROGEL [Concomitant]
  5. ARICEPT [Concomitant]
  6. WARFARIN SODIUM [Concomitant]
  7. RECLAST [Suspect]
     Indication: OSTEOPOROSIS
     Dosage: INTRAVENOUS
     Route: 042
     Dates: start: 20100212, end: 20100212
  8. LEXAPRO [Concomitant]
  9. VITAMIN D [Concomitant]

REACTIONS (14)
  - MYALGIA [None]
  - FATIGUE [None]
  - ARTHRALGIA [None]
  - OCULAR HYPERAEMIA [None]
  - IRITIS [None]
  - HEADACHE [None]
  - PYREXIA [None]
  - NAUSEA [None]
  - EYE DISORDER [None]
  - EYE SWELLING [None]
  - DYSSTASIA [None]
  - INFLUENZA LIKE ILLNESS [None]
  - EYE PAIN [None]
  - VISION BLURRED [None]
